APPROVED DRUG PRODUCT: IBUPROFEN
Active Ingredient: IBUPROFEN
Strength: 200MG
Dosage Form/Route: TABLET;ORAL
Application: A208865 | Product #001
Applicant: AUROBINDO PHARMA LTD
Approved: Nov 8, 2017 | RLD: No | RS: No | Type: OTC